FAERS Safety Report 6683385-5 (Version None)
Quarter: 2010Q2

REPORT INFORMATION
  Report Type: 
  Country: None (occurrence: None)
  Receive Date: 20100415
  Receipt Date: 20100406
  Transmission Date: 20101027
  Serious: Yes (Other)
  Sender: FDA-Public Use
  Company Number: DE-WYE-H14532210

PATIENT
  Age: 48 Year
  Sex: Male
  Weight: 74 kg

DRUGS (6)
  1. PANTOPRAZOLE [Suspect]
     Indication: ABDOMINAL PAIN UPPER
     Route: 048
     Dates: start: 20100123, end: 20100201
  2. PANTOPRAZOLE [Suspect]
     Indication: PROPHYLAXIS
  3. METOCLOPRAMIDE HYDROCHLORIDE [Concomitant]
     Indication: NAUSEA
     Dosage: 4 MG
     Route: 048
     Dates: start: 20100123, end: 20100201
  4. VOLTAREN [Concomitant]
     Indication: NEURALGIA
     Dosage: UNKNOWN
     Route: 048
     Dates: start: 20100129, end: 20100201
  5. FORTECORTIN [Concomitant]
     Indication: INTERVERTEBRAL DISC PROTRUSION
     Dosage: 4 MG
     Route: 048
     Dates: start: 20100121, end: 20100126
  6. FORTECORTIN [Concomitant]
     Indication: NEURALGIA

REACTIONS (4)
  - GAMMA-GLUTAMYLTRANSFERASE INCREASED [None]
  - GENERAL PHYSICAL HEALTH DETERIORATION [None]
  - TRANSAMINASES INCREASED [None]
  - TREMOR [None]
